FAERS Safety Report 22350966 (Version 6)
Quarter: 2025Q3

REPORT INFORMATION
  Report Type: Report from Study
  Country: EU (occurrence: EU)
  Receive Date: 20230522
  Receipt Date: 20250926
  Transmission Date: 20251020
  Serious: Yes (Life-Threatening, Hospitalization, Other)
  Sender: TAKEDA
  Company Number: EU-TAKEDA-2023TUS049107

PATIENT
  Sex: Male

DRUGS (13)
  1. TEDUGLUTIDE [Suspect]
     Active Substance: TEDUGLUTIDE
     Indication: Short-bowel syndrome
     Dosage: 2.8 MILLIGRAM, QD
     Dates: start: 20200312, end: 20240718
  2. TEDUGLUTIDE [Suspect]
     Active Substance: TEDUGLUTIDE
     Dosage: 4.4 MILLIGRAM, 4/WEEK
     Dates: start: 20240718
  3. TEDUGLUTIDE [Suspect]
     Active Substance: TEDUGLUTIDE
  4. TEDUGLUTIDE [Suspect]
     Active Substance: TEDUGLUTIDE
  5. PANTOPRAZOLE SODIUM [Concomitant]
     Active Substance: PANTOPRAZOLE SODIUM
     Indication: Gastritis
     Dosage: 20 MILLIGRAM, BID
     Dates: start: 20230119
  6. LOPERAMIDE [Concomitant]
     Active Substance: LOPERAMIDE
     Indication: Diarrhoea
  7. Detremin [Concomitant]
     Indication: Vitamin D deficiency
     Dosage: 800 INTERNATIONAL UNIT, QD
  8. CALCIUM CARBONATE [Concomitant]
     Active Substance: CALCIUM CARBONATE
     Indication: Calcium deficiency
     Dosage: 500 MILLIGRAM, QD
  9. CALCIUM CARBONATE [Concomitant]
     Active Substance: CALCIUM CARBONATE
     Indication: Vitamin D deficiency
  10. Solvezink [Concomitant]
     Indication: Zinc deficiency
     Dosage: 45 MILLIGRAM, QD
  11. PROPIOMAZINE [Concomitant]
     Active Substance: PROPIOMAZINE
     Indication: Sleep disorder
     Dosage: 25 MILLIGRAM, QD
  12. Hydroxocobalamin alternova [Concomitant]
     Dosage: 1 MILLIGRAM, QD
  13. Beviplex Forte [Concomitant]
     Indication: Crohn^s disease
     Dosage: UNK UNK, BID
     Dates: start: 20200108

REACTIONS (1)
  - Glioblastoma [Recovered/Resolved]

NARRATIVE: CASE EVENT DATE: 20230508
